FAERS Safety Report 16126720 (Version 1)
Quarter: 2019Q1

REPORT INFORMATION
  Report Type: Spontaneous
  Country: ES (occurrence: ES)
  Receive Date: 20190328
  Receipt Date: 20190328
  Transmission Date: 20190418
  Serious: Yes (Other)
  Sender: FDA-Public Use
  Company Number: ES-SUN PHARMACEUTICAL INDUSTRIES LTD-2019RR-203001

PATIENT
  Age: 94 Year
  Sex: Female

DRUGS (2)
  1. AMLODIPINO (2503A) [Suspect]
     Active Substance: AMLODIPINE BESYLATE
     Indication: HYPERTENSION
     Dosage: ()
     Route: 048
     Dates: start: 20181117, end: 20181217
  2. ALLOPURINOL. [Suspect]
     Active Substance: ALLOPURINOL
     Indication: HYPERTENSION
     Dosage: ()
     Route: 065
     Dates: start: 20181117, end: 20181217

REACTIONS (3)
  - Wrong drug [Recovered/Resolved]
  - Hypertension [Recovered/Resolved]
  - Condition aggravated [Recovered/Resolved]

NARRATIVE: CASE EVENT DATE: 20181217
